FAERS Safety Report 22352652 (Version 1)
Quarter: 2023Q2

REPORT INFORMATION
  Report Type: Spontaneous
  Country: US (occurrence: US)
  Receive Date: 20230523
  Receipt Date: 20230523
  Transmission Date: 20230722
  Serious: Yes (Hospitalization, Other)
  Sender: FDA-Public Use
  Company Number: US-GLAXOSMITHKLINE-USCH2023AMR022943

PATIENT

DRUGS (2)
  1. IBUPROFEN [Suspect]
     Active Substance: IBUPROFEN
     Indication: Product used for unknown indication
     Dosage: 2 G
  2. NAPROXEN [Suspect]
     Active Substance: NAPROXEN
     Indication: Product used for unknown indication
     Dosage: 41.8 G, 656 MG/KG; 63.7 KG

REACTIONS (5)
  - Lactic acidosis [Recovering/Resolving]
  - Hypotension [Recovering/Resolving]
  - Agitation [Recovering/Resolving]
  - Disorientation [Recovering/Resolving]
  - Lethargy [Recovering/Resolving]
